FAERS Safety Report 8532524-X (Version None)
Quarter: 2012Q3

REPORT INFORMATION
  Report Type: 
  Country: None (occurrence: None)
  Receive Date: 20120724
  Receipt Date: 20120718
  Transmission Date: 20120928
  Serious: No
  Sender: FDA-Public Use
  Company Number: US-PFIZER INC-2012174749

PATIENT
  Sex: Male
  Weight: 74 kg

DRUGS (5)
  1. METFORMIN [Concomitant]
     Dosage: 1000 MG, 2X/DAY
  2. LOVASTATIN [Concomitant]
     Dosage: 100 MG, DAILY
  3. PEGASYS [Concomitant]
     Dosage: UNK (2 SHOTS IN MORNING AND 3 AT NIGHT), 2X/DAY
  4. LYRICA [Suspect]
     Indication: NEURALGIA
     Dosage: UNK,2X/DAY
     Dates: end: 20120701
  5. GLIPIZIDE [Concomitant]
     Dosage: UNK, DAILY

REACTIONS (1)
  - PAIN [None]
